FAERS Safety Report 11663682 (Version 2)
Quarter: 2015Q4

REPORT INFORMATION
  Report Type: Spontaneous
  Country: US (occurrence: US)
  Receive Date: 20151027
  Receipt Date: 20151102
  Transmission Date: 20160304
  Serious: Yes (Hospitalization, Other)
  Sender: FDA-Public Use
  Company Number: US-TEVA-603102USA

PATIENT
  Age: 65 Year
  Sex: Male
  Weight: 76.5 kg

DRUGS (1)
  1. SYNRIBO [Suspect]
     Active Substance: OMACETAXINE MEPESUCCINATE
     Indication: CHRONIC MYELOID LEUKAEMIA
     Route: 065
     Dates: start: 20150922, end: 20151012

REACTIONS (5)
  - Cellulitis [Recovered/Resolved]
  - Haematocrit decreased [Unknown]
  - White blood cell count abnormal [Unknown]
  - Blood creatinine abnormal [Unknown]
  - Platelet disorder [Unknown]

NARRATIVE: CASE EVENT DATE: 20151012
